FAERS Safety Report 4924324-4 (Version None)
Quarter: 2006Q1

REPORT INFORMATION
  Report Type: 
  Country: None (occurrence: None)
  Receive Date: 20060227
  Receipt Date: 20060112
  Transmission Date: 20060701
  Serious: No
  Sender: FDA-Public Use
  Company Number: US-GLAXOSMITHKLINE-A0589038A

PATIENT
  Age: 50 Year
  Sex: Male

DRUGS (5)
  1. WELLBUTRIN XL [Suspect]
     Indication: DEPRESSION
     Dosage: 150MG PER DAY
     Route: 048
     Dates: start: 20060106
  2. RESTORIL [Concomitant]
  3. REMERON [Concomitant]
  4. HYZAAR [Concomitant]
  5. LISINOPRIL [Concomitant]

REACTIONS (1)
  - NIGHT SWEATS [None]
